FAERS Safety Report 9537258 (Version 1)
Quarter: 2013Q3

REPORT INFORMATION
  Report Type: Spontaneous
  Country: US (occurrence: US)
  Receive Date: 20130919
  Receipt Date: 20130919
  Transmission Date: 20140515
  Serious: No
  Sender: FDA-Public Use
  Company Number: US-PURDUE-USA-2013-0099160

PATIENT
  Age: 48 Year
  Sex: Female

DRUGS (1)
  1. INTERMEZZO [Suspect]
     Indication: MIDDLE INSOMNIA
     Dosage: 1.75 MG, PRN
     Route: 060
     Dates: start: 20130208, end: 20130215

REACTIONS (4)
  - Abdominal discomfort [Not Recovered/Not Resolved]
  - Vomiting [Recovered/Resolved]
  - Fatigue [Recovered/Resolved]
  - Drug ineffective [Unknown]
